FAERS Safety Report 21913298 (Version 1)
Quarter: 2023Q1

REPORT INFORMATION
  Report Type: Spontaneous
  Country: US (occurrence: US)
  Receive Date: 20230125
  Receipt Date: 20230125
  Transmission Date: 20230418
  Serious: No
  Sender: FDA-Public Use
  Company Number: US-ALLERGAN-2239516US

PATIENT
  Sex: Female

DRUGS (7)
  1. BOTOX [Suspect]
     Active Substance: ONABOTULINUMTOXINA
     Indication: Writer^s cramp
     Dosage: 100 UNITS, SINGLE
     Route: 030
  2. ESCITALOPRAM [Concomitant]
     Active Substance: ESCITALOPRAM OXALATE
     Dosage: DAILY
     Route: 048
  3. FOLIC ACID [Concomitant]
     Active Substance: FOLIC ACID
     Dosage: 1 MG, DAILY
     Route: 048
  4. HYDROXYCHLOROQUINE [Concomitant]
     Active Substance: HYDROXYCHLOROQUINE
     Dosage: 200 MG, 2TIMES DAILY
     Route: 048
  5. LEVOTHYROXINE [Concomitant]
     Active Substance: LEVOTHYROXINE
     Dosage: TAKE 1 TABLET (175 MCG TOTAL) BY MOUTH DAILY
  6. METHOTREXATE [Concomitant]
     Active Substance: METHOTREXATE
     Dosage: TAKE 7 TABLETS (17.5 MG TOTAL) BY MOUTH EVERY 7 DAYS
  7. VITAMIN C [Concomitant]
     Active Substance: ASCORBIC ACID
     Dosage: TAKE 500 MG BY MOUTH 2 (TWO) TIMES DAILY

REACTIONS (1)
  - Off label use [Unknown]
